FAERS Safety Report 14901344 (Version 3)
Quarter: 2018Q2

REPORT INFORMATION
  Report Type: Report from Study
  Country: IL (occurrence: IL)
  Receive Date: 20180516
  Receipt Date: 20180524
  Transmission Date: 20180711
  Serious: Yes (Hospitalization)
  Sender: FDA-Public Use
  Company Number: IL-ROCHE-2121994

PATIENT
  Age: 63 Year
  Sex: Female
  Weight: 77 kg

DRUGS (14)
  1. EXFORGE [Concomitant]
     Active Substance: AMLODIPINE BESYLATE\VALSARTAN
     Indication: HYPERTENSION
  2. ATORVASTIN [Concomitant]
     Active Substance: ATORVASTATIN
     Indication: HYPERTRIGLYCERIDAEMIA
  3. RAMIPRIL. [Concomitant]
     Active Substance: RAMIPRIL
     Indication: HYPERTENSION
     Route: 048
  4. INSULIN GLARGINE [Concomitant]
     Active Substance: INSULIN GLARGINE
     Indication: DIABETES MELLITUS
  5. IMODIUM [Concomitant]
     Active Substance: LOPERAMIDE HYDROCHLORIDE
     Indication: DIARRHOEA
     Route: 065
     Dates: start: 20170830
  6. NOVORAPID [Concomitant]
     Active Substance: INSULIN ASPART
     Indication: BLOOD GLUCOSE INCREASED
     Route: 065
     Dates: start: 20180508
  7. PLACEBO [Suspect]
     Active Substance: UNSPECIFIED INGREDIENT
     Indication: MALIGNANT MELANOMA
     Dosage: MOST RECENT DOSE ADMINISTERED PRIOR TO SAE: 12/APR/2018
     Route: 042
     Dates: start: 20170815
  8. COBIMETINIB. [Suspect]
     Active Substance: COBIMETINIB
     Indication: MALIGNANT MELANOMA
     Dosage: MOST RECENT DOSE OF COBIMETINIB PRIOR TO AUTOIMMUNE HEPATITIS: 09/MAY/2018 (40 MG)
     Route: 048
     Dates: start: 20170719
  9. AREDIA [Concomitant]
     Active Substance: PAMIDRONATE DISODIUM
     Indication: HYPERCALCAEMIA
     Route: 065
     Dates: start: 20170709
  10. VEMURAFENIB. [Suspect]
     Active Substance: VEMURAFENIB
     Indication: MALIGNANT MELANOMA
     Dosage: MOST RECENT DOSE PRIOR TO AUTOIMMUNE HEPATITIS: 09/MAY/2018 (3 TABLETS)
     Route: 048
     Dates: start: 20170719
  11. PRAMIN (ISRAEL) [Concomitant]
     Active Substance: IMIPRAMINE
     Indication: NAUSEA
  12. LANTUS [Concomitant]
     Active Substance: INSULIN GLARGINE
     Indication: BLOOD GLUCOSE INCREASED
     Route: 065
     Dates: start: 20180508
  13. ALLOPURINOL. [Concomitant]
     Active Substance: ALLOPURINOL
     Indication: GOUT
  14. ATENOLOL. [Concomitant]
     Active Substance: ATENOLOL
     Indication: HYPERTENSION

REACTIONS (1)
  - Autoimmune hepatitis [Not Recovered/Not Resolved]

NARRATIVE: CASE EVENT DATE: 20180509
